FAERS Safety Report 5164494-9 (Version None)
Quarter: 2006Q4

REPORT INFORMATION
  Report Type: 
  Country: None (occurrence: None)
  Receive Date: 20061205
  Receipt Date: 20061127
  Transmission Date: 20070319
  Serious: Yes (Other)
  Sender: FDA-Public Use
  Company Number: ES-BRISTOL-MYERS SQUIBB COMPANY-13591037

PATIENT
  Sex: Male

DRUGS (3)
  1. CISPLATIN [Suspect]
     Indication: BASAL CELL CARCINOMA
     Route: 042
     Dates: start: 20030801
  2. PACLITAXEL [Suspect]
     Indication: BASAL CELL CARCINOMA
  3. CAPECITABINE [Suspect]
     Indication: BASAL CELL CARCINOMA
     Route: 048
     Dates: start: 20030801

REACTIONS (7)
  - ANAEMIA [None]
  - ASTHENIA [None]
  - MALIGNANT NEOPLASM PROGRESSION [None]
  - MUCOSAL INFLAMMATION [None]
  - MUSCULOSKELETAL PAIN [None]
  - NEUROTOXICITY [None]
  - PALMAR-PLANTAR ERYTHRODYSAESTHESIA SYNDROME [None]
